FAERS Safety Report 13604564 (Version 1)
Quarter: 2017Q2

REPORT INFORMATION
  Report Type: Spontaneous
  Country: US (occurrence: US)
  Receive Date: 20170601
  Receipt Date: 20170601
  Transmission Date: 20170830
  Serious: Yes (Hospitalization, Disabling)
  Sender: FDA-Public Use
  Company Number: None

PATIENT
  Age: 34 Year
  Sex: Male
  Weight: 81.65 kg

DRUGS (9)
  1. INVEGA [Suspect]
     Active Substance: PALIPERIDONE
  2. LITHIUM. [Concomitant]
     Active Substance: LITHIUM
  3. SOURCES OF LIFE HOSPITAL BRAND VITAMINS [Concomitant]
  4. COGENTIN [Concomitant]
     Active Substance: BENZTROPINE MESYLATE
  5. HALDOL [Concomitant]
     Active Substance: HALOPERIDOL
  6. PROLIXIN [Concomitant]
     Active Substance: FLUPHENAZINE HYDROCHLORIDE
  7. BENADRYL [Concomitant]
     Active Substance: DIPHENHYDRAMINE HYDROCHLORIDE
  8. ABILIFY [Concomitant]
     Active Substance: ARIPIPRAZOLE
  9. RISPERDAL [Suspect]
     Active Substance: RISPERIDONE
     Indication: SCHIZOPHRENIA
     Dates: start: 20051221, end: 20170426

REACTIONS (7)
  - Dysarthria [None]
  - Chest pain [None]
  - Dyspnoea [None]
  - Constipation [None]
  - Cardiac disorder [None]
  - Somnolence [None]
  - Musculoskeletal disorder [None]

NARRATIVE: CASE EVENT DATE: 20051223
